FAERS Safety Report 8105145-0 (Version None)
Quarter: 2012Q1

REPORT INFORMATION
  Report Type: 
  Country: None (occurrence: None)
  Receive Date: 20120201
  Receipt Date: 20111117
  Transmission Date: 20120608
  Serious: Yes (Other)
  Sender: FDA-Public Use
  Company Number: ES-ROXANE LABORATORIES, INC.-2011-EU-00532GD

PATIENT
  Age: 50 Year
  Sex: Male

DRUGS (3)
  1. PREDNISONE TAB [Suspect]
     Indication: PERIPHERAL SENSORY NEUROPATHY
     Dosage: 60 MG
     Route: 048
  2. PREDNISONE TAB [Suspect]
     Indication: ATAXIA
  3. PREDNISONE TAB [Suspect]
     Indication: AUTOIMMUNE NEUROPATHY

REACTIONS (6)
  - DYSPHAGIA [None]
  - WALKING DISABILITY [None]
  - DYSARTHRIA [None]
  - NEUROLOGICAL DECOMPENSATION [None]
  - ANAESTHESIA [None]
  - DIPLOPIA [None]
